FAERS Safety Report 10776709 (Version 4)
Quarter: 2016Q4

REPORT INFORMATION
  Report Type: Spontaneous
  Country: US (occurrence: US)
  Receive Date: 20150209
  Receipt Date: 20161006
  Transmission Date: 20170206
  Serious: No
  Sender: FDA-Public Use
  Company Number: US-GLAXOSMITHKLINE-A1090058A

PATIENT

DRUGS (1)
  1. BENLYSTA [Suspect]
     Active Substance: BELIMUMAB
     Indication: SYSTEMIC LUPUS ERYTHEMATOSUS
     Route: 065

REACTIONS (3)
  - Adverse drug reaction [Unknown]
  - Migraine [Unknown]
  - Malaise [Unknown]

NARRATIVE: CASE EVENT DATE: 20150704
